FAERS Safety Report 9457678 (Version 1)
Quarter: 2013Q3

REPORT INFORMATION
  Report Type: Spontaneous
  Country: US (occurrence: None)
  Receive Date: 20130812
  Receipt Date: 20130812
  Transmission Date: 20140515
  Serious: Yes (Disabling)
  Sender: FDA-Public Use
  Company Number: None

PATIENT
  Age: 64 Year
  Sex: Male
  Weight: 70.31 kg

DRUGS (1)
  1. JALYN [Suspect]
     Indication: BENIGN PROSTATIC HYPERPLASIA
     Dosage: 1 PILL ONCE DAILY TAKEN BY MOUTH
     Route: 048
     Dates: start: 20100909, end: 20130610

REACTIONS (9)
  - Rhinorrhoea [None]
  - Dizziness [None]
  - Somnolence [None]
  - Dizziness [None]
  - Semen volume decreased [None]
  - Libido decreased [None]
  - Ejaculation disorder [None]
  - Erectile dysfunction [None]
  - Vision blurred [None]
